FAERS Safety Report 18252667 (Version 1)
Quarter: 2020Q3

REPORT INFORMATION
  Report Type: Spontaneous
  Country: US (occurrence: US)
  Receive Date: 20200910
  Receipt Date: 20200910
  Transmission Date: 20201103
  Serious: No
  Sender: FDA-Public Use
  Company Number: None

PATIENT
  Age: 81 Year
  Sex: Male
  Weight: 49.32 kg

DRUGS (13)
  1. DUAKLIR PRESSAIR 400?12MCG/ACT [Concomitant]
  2. ALBUTEROL SULFATE HFA [Concomitant]
     Active Substance: ALBUTEROL SULFATE
  3. INCRUSE ELLIPTA 62.5MCG/INH [Concomitant]
  4. PERCOCET [Concomitant]
     Active Substance: ACETAMINOPHEN\OXYCODONE HYDROCHLORIDE
  5. ASPIRIN 81MG [Concomitant]
     Active Substance: ASPIRIN
  6. ADVAIR HFA 115?21MCG/ACT [Concomitant]
  7. PLAVIX [Concomitant]
     Active Substance: CLOPIDOGREL BISULFATE
  8. MIRALAX 17G [Concomitant]
  9. CAPECITABINE. [Suspect]
     Active Substance: CAPECITABINE
     Indication: BREAST CANCER
     Dosage: ?          OTHER FREQUENCY:1000MG AM,500MG PM;?
     Route: 048
     Dates: start: 20191126
  10. FLOVENT DISKUS 100MCG/BLIST [Concomitant]
  11. BISACODYL EC 5MG [Concomitant]
  12. SIMVASTATIN 20MG [Concomitant]
     Active Substance: SIMVASTATIN
  13. ACETAMINOPHEN 325MG [Concomitant]

REACTIONS (3)
  - Dry skin [None]
  - Skin discolouration [None]
  - Skin fissures [None]

NARRATIVE: CASE EVENT DATE: 20200910
